FAERS Safety Report 12736818 (Version 5)
Quarter: 2023Q2

REPORT INFORMATION
  Report Type: Report from Study
  Country: ES (occurrence: None)
  Receive Date: 20160913
  Receipt Date: 20230615
  Transmission Date: 20230721
  Serious: Yes (Hospitalization)
  Sender: FDA-Public Use
  Company Number: ES-ROCHE-1827753

PATIENT
  Age: 64 Year
  Sex: Male
  Weight: 64 kg

DRUGS (15)
  1. LENALIDOMIDE [Suspect]
     Active Substance: LENALIDOMIDE
     Indication: Diffuse large B-cell lymphoma
     Dosage: 1-14 DAYS AND 21-DAY CYCLE
     Route: 048
     Dates: start: 20160610, end: 20160823
  2. LENALIDOMIDE [Suspect]
     Active Substance: LENALIDOMIDE
     Dosage: 1-14 DAYS AND 21-DAY CYCLE
     Route: 048
     Dates: start: 20160812, end: 20160823
  3. RITUXIMAB [Suspect]
     Active Substance: RITUXIMAB
     Indication: Diffuse large B-cell lymphoma
     Dosage: DOSE: 375 MG/M2?MOST RECENT CYCLE STARTED ON 12/AUG/2016
     Route: 042
     Dates: start: 20160610
  4. DOXORUBICIN [Suspect]
     Active Substance: DOXORUBICIN
     Indication: Diffuse large B-cell lymphoma
     Dosage: DOSE: 50 MG/M2?MOST RECENT CYCLE STARTED ON 12/AUG/2016
     Route: 042
     Dates: start: 20160610
  5. CYCLOPHOSPHAMIDE [Suspect]
     Active Substance: CYCLOPHOSPHAMIDE
     Indication: Diffuse large B-cell lymphoma
     Dosage: DOSE: 750 MG/M2 ?MOST RECENT CYCLE STARTED ON 12/AUG/2016
     Route: 042
     Dates: start: 20160610
  6. VINCRISTINE [Suspect]
     Active Substance: VINCRISTINE
     Indication: Diffuse large B-cell lymphoma
     Dosage: MOST RECENT CYCLE STARTED ON 12/AUG/2016
     Route: 042
     Dates: start: 20160610
  7. PREDNISONE [Suspect]
     Active Substance: PREDNISONE
     Indication: Diffuse large B-cell lymphoma
     Dosage: DOSE: 100 MG?FOR 5 DAY; MOST RECENT CYCLE STARTED ON 12/AUG/2016
     Route: 048
     Dates: start: 20160610
  8. OMEPRAZOLE [Concomitant]
     Active Substance: OMEPRAZOLE
     Route: 048
  9. SULFAMETHOXAZOLE\TRIMETHOPRIM [Concomitant]
     Active Substance: SULFAMETHOXAZOLE\TRIMETHOPRIM
     Route: 048
  10. ASPIRIN [Concomitant]
     Active Substance: ASPIRIN
     Route: 048
     Dates: start: 20160608
  11. LAMIVUDINE [Concomitant]
     Active Substance: LAMIVUDINE
     Route: 048
     Dates: start: 20160608
  12. GABAPENTIN [Concomitant]
     Active Substance: GABAPENTIN
     Indication: Nephropathy
     Route: 048
     Dates: start: 20160811
  13. SULFAMETHOXAZOLE [Concomitant]
     Active Substance: SULFAMETHOXAZOLE
  14. TRIMETHOPRIM [Concomitant]
     Active Substance: TRIMETHOPRIM
  15. ASPIRIN [Concomitant]
     Active Substance: ASPIRIN

REACTIONS (2)
  - Febrile neutropenia [Recovered/Resolved]
  - Mucosal inflammation [Not Recovered/Not Resolved]

NARRATIVE: CASE EVENT DATE: 20160822
